FAERS Safety Report 16151892 (Version 1)
Quarter: 2019Q2

REPORT INFORMATION
  Report Type: Report from Study
  Country: US (occurrence: US)
  Receive Date: 20190403
  Receipt Date: 20190403
  Transmission Date: 20190711
  Serious: Yes (Hospitalization)
  Sender: FDA-Public Use
  Company Number: US-CELGENEUS-USA-20180305157

PATIENT
  Age: 48 Year
  Sex: Female
  Weight: 93.7 kg

DRUGS (31)
  1. CISPLATIN. [Suspect]
     Active Substance: CISPLATIN
     Indication: TRIPLE NEGATIVE BREAST CANCER
     Dosage: 50 MILLIGRAM/SQ. METER
     Route: 041
     Dates: start: 20180307, end: 20180809
  2. ESCITALOPRAM OXALATE. [Concomitant]
     Active Substance: ESCITALOPRAM OXALATE
     Indication: PRODUCT USED FOR UNKNOWN INDICATION
     Dosage: 10 MILLIGRAM
     Route: 065
  3. DEXAMETHASONE. [Concomitant]
     Active Substance: DEXAMETHASONE
     Indication: PRODUCT USED FOR UNKNOWN INDICATION
     Dosage: 4 MILLIGRAM
     Route: 065
  4. GABAPENTIN. [Concomitant]
     Active Substance: GABAPENTIN
     Indication: PRODUCT USED FOR UNKNOWN INDICATION
     Dosage: 900 MILLIGRAM
     Route: 048
  5. NEUPOGEN [Concomitant]
     Active Substance: FILGRASTIM
     Indication: WHITE BLOOD CELL COUNT
     Route: 065
  6. OXYCODONE [Concomitant]
     Active Substance: OXYCODONE
     Dosage: 30 MILLIGRAM
     Route: 048
  7. HEPARIN [Concomitant]
     Active Substance: HEPARIN SODIUM
     Indication: PROPHYLAXIS
     Route: 065
  8. IOHEXOL [Concomitant]
     Active Substance: IOHEXOL
     Indication: PRODUCT USED FOR UNKNOWN INDICATION
     Dosage: 350MG/ML-80ML
     Route: 041
     Dates: start: 20190321
  9. LEVOTHYROXINE. [Concomitant]
     Active Substance: LEVOTHYROXINE
     Indication: HYPOTHYROIDISM
     Dosage: 75 MICROGRAM
     Route: 048
  10. SUCRALFATE. [Concomitant]
     Active Substance: SUCRALFATE
     Indication: PRODUCT USED FOR UNKNOWN INDICATION
     Route: 065
  11. MORPHINE [Concomitant]
     Active Substance: MORPHINE
     Indication: PRODUCT USED FOR UNKNOWN INDICATION
     Dosage: 4 MILLIGRAM
     Route: 041
     Dates: start: 20190321
  12. MAGNESIUM OXIDE. [Concomitant]
     Active Substance: MAGNESIUM OXIDE
     Indication: PRODUCT USED FOR UNKNOWN INDICATION
     Dosage: 400 MILLIGRAM
     Route: 048
  13. LOVENOX [Concomitant]
     Active Substance: ENOXAPARIN SODIUM
     Indication: PROPHYLAXIS
     Route: 065
  14. OXYCODONE [Concomitant]
     Active Substance: OXYCODONE
     Indication: PAIN
     Dosage: 5-10MG
     Route: 065
  15. LORAZEPAM. [Concomitant]
     Active Substance: LORAZEPAM
     Indication: NAUSEA
     Dosage: 1.5 MILLIGRAM
     Route: 048
  16. ROMIDEPSIN. [Suspect]
     Active Substance: ROMIDEPSIN
     Indication: TRIPLE NEGATIVE BREAST CANCER
     Dosage: 8 MILLIGRAM/SQ. METER
     Route: 041
     Dates: start: 20180308
  17. ELIQUIS [Concomitant]
     Active Substance: APIXABAN
     Indication: VENOUS THROMBOSIS
     Route: 065
  18. TYLENOL [Concomitant]
     Active Substance: ACETAMINOPHEN
     Indication: PAIN
     Dosage: 4000 MILLIGRAM
     Route: 065
  19. FERROUS GLUCONATE [Concomitant]
     Active Substance: FERROUS GLUCONATE
     Indication: ANAEMIA
     Route: 065
  20. LACTATED RINGERS SOLUTION [Concomitant]
     Active Substance: CALCIUM CHLORIDE\POTASSIUM CHLORIDE\SODIUM CHLORIDE\SODIUM LACTATE
     Indication: PRODUCT USED FOR UNKNOWN INDICATION
     Dosage: 1000 MILLILITER
     Route: 041
     Dates: start: 20190321
  21. SODIUM CHLORIDE. [Concomitant]
     Active Substance: SODIUM CHLORIDE
     Indication: PRODUCT USED FOR UNKNOWN INDICATION
     Dosage: 50 MILLILITER
     Route: 041
     Dates: start: 20190321
  22. FAMOTIDINE. [Concomitant]
     Active Substance: FAMOTIDINE
     Dosage: 20 MILLIGRAM
     Route: 041
     Dates: start: 20190321
  23. TRANSDERM SCOP [Concomitant]
     Active Substance: SCOPOLAMINE
     Indication: PRODUCT USED FOR UNKNOWN INDICATION
     Dosage: 1.5 MILLIGRAM
     Route: 065
  24. LIDOCAINE AND PRILOCAINE [Concomitant]
     Active Substance: LIDOCAINE\PRILOCAINE
     Indication: PRODUCT USED FOR UNKNOWN INDICATION
     Dosage: 2.5/2.5%
     Route: 061
  25. LOSARTAN POTASSIUM. [Concomitant]
     Active Substance: LOSARTAN POTASSIUM
     Indication: PRODUCT USED FOR UNKNOWN INDICATION
     Dosage: 50 MILLIGRAM
     Route: 065
  26. FAMOTIDINE. [Concomitant]
     Active Substance: FAMOTIDINE
     Indication: PRODUCT USED FOR UNKNOWN INDICATION
     Dosage: 20 MILLIGRAM
     Route: 065
  27. TOPIRAMATE. [Concomitant]
     Active Substance: TOPIRAMATE
     Indication: MIGRAINE
     Dosage: 25 MILLIGRAM
     Route: 048
  28. LORAZEPAM. [Concomitant]
     Active Substance: LORAZEPAM
     Indication: VOMITING
     Dosage: .5 MILLIGRAM
     Route: 041
     Dates: start: 20190321
  29. VENOFER [Concomitant]
     Active Substance: IRON SUCROSE
     Indication: MICROCYTIC ANAEMIA
     Dosage: 2 DOSES
     Route: 065
  30. NIVOLUMAB [Suspect]
     Active Substance: NIVOLUMAB
     Indication: TRIPLE NEGATIVE BREAST CANCER
     Dosage: 360 MILLIGRAM
     Route: 041
     Dates: start: 20180308
  31. FENTANYL CITRATE. [Concomitant]
     Active Substance: FENTANYL CITRATE
     Indication: PRODUCT USED FOR UNKNOWN INDICATION
     Dosage: 50 MICROGRAM
     Route: 041
     Dates: start: 20190321

REACTIONS (5)
  - Decreased appetite [Recovered/Resolved]
  - Dyspepsia [Recovered/Resolved with Sequelae]
  - Vomiting [Recovered/Resolved]
  - Headache [Recovered/Resolved]
  - Nausea [Recovered/Resolved]

NARRATIVE: CASE EVENT DATE: 20180312
